FAERS Safety Report 11300229 (Version 1)
Quarter: 2015Q3

REPORT INFORMATION
  Report Type: Spontaneous
  Country: US (occurrence: US)
  Receive Date: 20150722
  Receipt Date: 20150722
  Transmission Date: 20151125
  Serious: No
  Sender: FDA-Public Use
  Company Number: US-ELI_LILLY_AND_COMPANY-US201302008110

PATIENT
  Age: 13 Year
  Sex: Male
  Weight: 60.7 kg

DRUGS (2)
  1. SOMATROPIN [Suspect]
     Active Substance: SOMATROPIN
     Dosage: 2.7 MG, 6 DAYS A WEEK
     Route: 058
     Dates: start: 20130121
  2. SOMATROPIN [Suspect]
     Active Substance: SOMATROPIN
     Dosage: 3.2 MG, OTHER
     Route: 058

REACTIONS (2)
  - Musculoskeletal stiffness [Recovered/Resolved]
  - Headache [Recovered/Resolved]

NARRATIVE: CASE EVENT DATE: 201304
